FAERS Safety Report 9922576 (Version 1)
Quarter: 2014Q1

REPORT INFORMATION
  Report Type: Report from Study
  Country: IN (occurrence: IN)
  Receive Date: 20140225
  Receipt Date: 20140225
  Transmission Date: 20141002
  Serious: Yes (Death, Hospitalization)
  Sender: FDA-Public Use
  Company Number: PHHY2014IN022503

PATIENT
  Age: 91 Year
  Sex: Male

DRUGS (4)
  1. EXELON PATCH [Suspect]
     Indication: DEMENTIA ALZHEIMER^S TYPE
     Dosage: 9.5 MG/24 HOURS (10 CM)
     Route: 062
     Dates: start: 20130830
  2. QUETIAPIN [Concomitant]
     Indication: SCHIZOPHRENIA
     Dosage: UNK UKN, UNK
     Route: 048
  3. ELKAR [Concomitant]
     Indication: SUPPLEMENTATION THERAPY
     Dosage: UNK UKN, UNK
     Route: 048
  4. XALATAN [Concomitant]
     Dosage: UNK UKN, UNK
     Route: 061

REACTIONS (1)
  - Bradycardia [Fatal]
